FAERS Safety Report 10505139 (Version 1)
Quarter: 2014Q3

REPORT INFORMATION
  Report Type: Spontaneous
  Country: US (occurrence: None)
  Receive Date: 20140926
  Receipt Date: 20140926
  Transmission Date: 20150326
  Serious: Yes (Other)
  Sender: FDA-Public Use
  Company Number: US-MDCO-14-00086

PATIENT
  Age: 82 Year
  Sex: Male

DRUGS (1)
  1. CLEVIPREX [Suspect]
     Active Substance: CLEVIDIPINE
     Indication: MALIGNANT HYPERTENSION
     Dosage: INITIALIALLY 1 MG/HR. MAX DOSE  14-OCT-2013 AT 3:15 PM - 16-OCT-2013 AT 6:04 AM AT 16 MG/HR, INTRAVENOUS DRIP-
     Dates: start: 20131014, end: 20131016

REACTIONS (1)
  - Renal failure acute [None]

NARRATIVE: CASE EVENT DATE: 20131016
